FAERS Safety Report 16908959 (Version 1)
Quarter: 2019Q4

REPORT INFORMATION
  Report Type: Report from Study
  Country: GB (occurrence: GB)
  Receive Date: 20191011
  Receipt Date: 20191011
  Transmission Date: 20200122
  Serious: Yes (Hospitalization)
  Sender: FDA-Public Use
  Company Number: GB-JNJFOC-20191002271

PATIENT
  Age: 5 Decade
  Sex: Female
  Weight: 84 kg

DRUGS (6)
  1. LOSARTAN. [Concomitant]
     Active Substance: LOSARTAN
     Route: 065
     Dates: start: 20180115
  2. STELARA [Suspect]
     Active Substance: USTEKINUMAB
     Indication: PSORIASIS
     Route: 058
     Dates: start: 20170327
  3. DOXYCYCLINE                        /00055702/ [Concomitant]
     Active Substance: DOXYCYCLINE
     Route: 065
     Dates: start: 20181231, end: 20190107
  4. OXYCODONE [Concomitant]
     Active Substance: OXYCODONE
     Route: 065
     Dates: start: 20181231, end: 20190415
  5. CETIRIZINE                         /00884302/ [Concomitant]
     Active Substance: CETIRIZINE HYDROCHLORIDE
     Route: 065
     Dates: start: 20160614
  6. LEVOTHYROXINE SODIUM. [Concomitant]
     Active Substance: LEVOTHYROXINE SODIUM
     Route: 065
     Dates: start: 20180315

REACTIONS (10)
  - Lower respiratory tract infection [Recovered/Resolved]
  - Road traffic accident [Recovered/Resolved]
  - Rib fracture [Recovered/Resolved]
  - Peritoneal haemorrhage [Recovered/Resolved]
  - Adrenal haematoma [Recovered/Resolved]
  - Clavicle fracture [Recovered/Resolved]
  - Hepatic cyst [Recovered/Resolved]
  - Traumatic haemothorax [Recovered/Resolved]
  - Traumatic liver injury [Recovered/Resolved]
  - Hypertension [Recovered/Resolved]

NARRATIVE: CASE EVENT DATE: 20181219
